FAERS Safety Report 11872151 (Version 1)
Quarter: 2015Q4

REPORT INFORMATION
  Report Type: Spontaneous
  Country: US (occurrence: US)
  Receive Date: 20151228
  Receipt Date: 20151228
  Transmission Date: 20160305
  Serious: Yes (Hospitalization)
  Sender: FDA-Public Use
  Company Number: US-PFIZER INC-2015462672

PATIENT
  Age: 74 Year
  Sex: Male
  Weight: 84.37 kg

DRUGS (2)
  1. LYRICA [Suspect]
     Active Substance: PREGABALIN
     Dosage: 50 MG, ONE CAPSULE BY MOUTH IN THE MORNING AND TWO CAPSULES AT NIGHT
     Route: 048
  2. LYRICA [Suspect]
     Active Substance: PREGABALIN
     Indication: NEUROPATHY PERIPHERAL
     Dosage: 50 MG ONE CAPSULE BY MOUTH ONCE IN THE MORNING AND ONE CAPSULE AT NIGHT
     Route: 048

REACTIONS (19)
  - Sepsis [Recovered/Resolved]
  - Road traffic accident [Recovered/Resolved with Sequelae]
  - Dyspnoea [Not Recovered/Not Resolved]
  - Neuropathy peripheral [Recovering/Resolving]
  - Mobility decreased [Unknown]
  - Activities of daily living impaired [Recovered/Resolved]
  - Limb discomfort [Unknown]
  - Fall [Unknown]
  - Bedridden [Recovered/Resolved with Sequelae]
  - Pyrexia [Recovered/Resolved]
  - Depression [Unknown]
  - Weight decreased [Not Recovered/Not Resolved]
  - Contusion [Recovered/Resolved with Sequelae]
  - Abnormal behaviour [Recovered/Resolved]
  - Frustration [Unknown]
  - Muscle atrophy [Not Recovered/Not Resolved]
  - Asthenia [Not Recovered/Not Resolved]
  - Impaired driving ability [Recovered/Resolved with Sequelae]
  - Condition aggravated [Recovering/Resolving]

NARRATIVE: CASE EVENT DATE: 2015
